FAERS Safety Report 6730239-1 (Version None)
Quarter: 2010Q2

REPORT INFORMATION
  Report Type: 
  Country: None (occurrence: None)
  Receive Date: 20100513
  Receipt Date: 20100505
  Transmission Date: 20101027
  Serious: Yes (Hospitalization, Disabling)
  Sender: FDA-Public Use
  Company Number: 200007294

PATIENT
  Age: 31 Year
  Weight: 53.978 kg

DRUGS (1)
  1. GERM-X ORIGINAL HAND SANITIZER [Suspect]
     Dosage: PRODUCT WAS INGESTED

REACTIONS (6)
  - ABASIA [None]
  - ACTIVITIES OF DAILY LIVING IMPAIRED [None]
  - APHASIA [None]
  - DEPRESSED LEVEL OF CONSCIOUSNESS [None]
  - INTENTIONAL DRUG MISUSE [None]
  - LOSS OF EMPLOYMENT [None]
